FAERS Safety Report 22625481 (Version 1)
Quarter: 2023Q2

REPORT INFORMATION
  Report Type: Spontaneous
  Country: US (occurrence: None)
  Receive Date: 20230620
  Receipt Date: 20230620
  Transmission Date: 20230722
  Serious: Yes (Other)
  Sender: FDA-Public Use
  Company Number: None

PATIENT
  Sex: Male

DRUGS (2)
  1. GLIMEPIRIDE [Suspect]
     Active Substance: GLIMEPIRIDE
     Dates: start: 20230618, end: 20230620
  2. TRADJENTA [Suspect]
     Active Substance: LINAGLIPTIN
     Dates: start: 20230618

REACTIONS (1)
  - Blood glucose decreased [None]
